FAERS Safety Report 24085044 (Version 1)
Quarter: 2024Q3

REPORT INFORMATION
  Report Type: Report from Study
  Country: CA (occurrence: CA)
  Receive Date: 20240712
  Receipt Date: 20240712
  Transmission Date: 20241016
  Serious: No
  Sender: PIERRE FABRE MEDICAMENT
  Company Number: CA-PFM-2021-11046

PATIENT
  Age: 36 Year
  Sex: Female

DRUGS (9)
  1. PROPRANOLOL HYDROCHLORIDE [Suspect]
     Active Substance: PROPRANOLOL HYDROCHLORIDE
     Indication: Migraine
     Dosage: UNK
     Route: 065
  2. PROPRANOLOL HYDROCHLORIDE [Suspect]
     Active Substance: PROPRANOLOL HYDROCHLORIDE
     Indication: Off label use
  3. AIMOVIG [Suspect]
     Active Substance: ERENUMAB-AOOE
     Indication: Migraine
     Dosage: 1 EVERY 1 MONTH
     Route: 065
  4. TOPIRAMATE [Suspect]
     Active Substance: TOPIRAMATE
     Indication: Migraine
     Dosage: 60 MG, UNK
     Route: 065
  5. TOPIRAMATE [Suspect]
     Active Substance: TOPIRAMATE
     Dosage: 25 MG, BID (2/DAY)
     Route: 065
  6. VERAPAMIL [Suspect]
     Active Substance: VERAPAMIL HYDROCHLORIDE
     Indication: Migraine
     Dosage: 80 MG, QD (1/DAY)
     Route: 065
  7. AMITRIPTYLINE\PERPHENAZINE [Concomitant]
     Active Substance: AMITRIPTYLINE\PERPHENAZINE
     Indication: Product used for unknown indication
     Dosage: 10 MG, QD (1/DAY)
     Route: 065
  8. AMITRIPTYLINE\PERPHENAZINE [Concomitant]
     Active Substance: AMITRIPTYLINE\PERPHENAZINE
     Dosage: 40 MG, UNK
     Route: 065
  9. MIRENA [Concomitant]
     Active Substance: LEVONORGESTREL
     Indication: Product used for unknown indication
     Dosage: UNK
     Route: 065

REACTIONS (10)
  - Aphasia [Unknown]
  - Disturbance in attention [Unknown]
  - Drug intolerance [Unknown]
  - Headache [Unknown]
  - Hypoaesthesia [Unknown]
  - Memory impairment [Unknown]
  - Post lumbar puncture syndrome [Unknown]
  - Drug ineffective for unapproved indication [Unknown]
  - Product use issue [Unknown]
  - Off label use [Unknown]
